FAERS Safety Report 4842266-X (Version None)
Quarter: 2005Q4

REPORT INFORMATION
  Report Type: 
  Country: None (occurrence: None)
  Receive Date: 20051125
  Receipt Date: 20051111
  Transmission Date: 20060501
  Serious: Yes (Hospitalization, Other)
  Sender: FDA-Public Use
  Company Number: 2005154944

PATIENT
  Sex: Female

DRUGS (1)
  1. SILDENAFIL CITRATE [Suspect]
     Indication: PULMONARY HYPERTENSION
     Dosage: ORAL
     Route: 048

REACTIONS (11)
  - ANAEMIA [None]
  - BLOOD PRESSURE FLUCTUATION [None]
  - CONDITION AGGRAVATED [None]
  - DRUG INEFFECTIVE [None]
  - EPISTAXIS [None]
  - HAEMOPTYSIS [None]
  - HEART RATE INCREASED [None]
  - HEPATIC CONGESTION [None]
  - HEPATIC FAILURE [None]
  - LIVER TRANSPLANT [None]
  - PULMONARY HYPERTENSION [None]
